FAERS Safety Report 16660890 (Version 1)
Quarter: 2019Q3

REPORT INFORMATION
  Report Type: Spontaneous
  Country: EG (occurrence: EG)
  Receive Date: 20190802
  Receipt Date: 20190802
  Transmission Date: 20191004
  Serious: Yes (Life-Threatening)
  Sender: FDA-Public Use
  Company Number: EG-HIKMA PHARMACEUTICALS USA INC.-EG-H14001-19-04447

PATIENT
  Age: 50 Year
  Sex: Female
  Weight: 40 kg

DRUGS (2)
  1. ETOPUL [Suspect]
     Active Substance: ETOPOSIDE
     Indication: THYMOMA
     Dosage: ON DAY 1, 3 AND 4 FROM EACH CYCLE
     Route: 041
     Dates: start: 20181219
  2. CISPLATIN. [Concomitant]
     Active Substance: CISPLATIN
     Indication: THYMOMA
     Route: 041
     Dates: start: 20181219

REACTIONS (2)
  - Alanine aminotransferase increased [Unknown]
  - Aspartate aminotransferase increased [Unknown]

NARRATIVE: CASE EVENT DATE: 20190109
